FAERS Safety Report 18109841 (Version 6)
Quarter: 2022Q1

REPORT INFORMATION
  Report Type: Report from Study
  Country: CA (occurrence: CA)
  Receive Date: 20200804
  Receipt Date: 20220318
  Transmission Date: 20220423
  Serious: Yes (Other)
  Sender: FDA-Public Use
  Company Number: CA-BAUSCH-BL-2020-021380

PATIENT

DRUGS (8)
  1. CONTRAVE [Suspect]
     Active Substance: BUPROPION HYDROCHLORIDE\NALTREXONE HYDROCHLORIDE
     Indication: Weight control
     Dosage: STRENGTH: 90 MG/8 MG (1 DOSAGE FORMS, 1 IN 1 D)
     Route: 048
     Dates: start: 20200716, end: 20200723
  2. CONTRAVE [Suspect]
     Active Substance: BUPROPION HYDROCHLORIDE\NALTREXONE HYDROCHLORIDE
     Dosage: STRENGTH: 90 MG/8 MG; 1 TABLET IN MORNING, 1 TABLET IN EVENING
     Route: 048
     Dates: start: 20200724, end: 20200731
  3. CONTRAVE [Suspect]
     Active Substance: BUPROPION HYDROCHLORIDE\NALTREXONE HYDROCHLORIDE
     Dosage: STRENGTH: 90 MG/8 MG; 2 TABLETS IN MORNING, 1 TABLET IN EVENING (1 IN 12 HR)
     Route: 048
     Dates: start: 20200801, end: 20200807
  4. CONTRAVE [Suspect]
     Active Substance: BUPROPION HYDROCHLORIDE\NALTREXONE HYDROCHLORIDE
     Dosage: STRENGTH: 90 MG/8 MG; 2 TABLETS IN MORNING, 2 TABLETS IN EVENING
     Route: 048
     Dates: start: 20200808, end: 202112
  5. CONTRAVE [Suspect]
     Active Substance: BUPROPION HYDROCHLORIDE\NALTREXONE HYDROCHLORIDE
     Dosage: STRENGTH: 90 MG/8 MG; DECREASED TO 2 TABLETS IN MORNING
     Route: 048
     Dates: start: 202112
  6. INDAPAMIDE\PERINDOPRIL ERBUMINE [Concomitant]
     Active Substance: INDAPAMIDE\PERINDOPRIL ERBUMINE
     Indication: Hypertension
     Dosage: 1 IN 1 D
     Route: 048
  7. EFFEXOR [Concomitant]
     Active Substance: VENLAFAXINE HYDROCHLORIDE
     Indication: Anxiety
     Dosage: 150 MG,1 IN 1 D
     Route: 048
  8. EFFEXOR [Concomitant]
     Active Substance: VENLAFAXINE HYDROCHLORIDE
     Indication: Depression

REACTIONS (20)
  - Nephrolithiasis [Unknown]
  - Chromaturia [Recovering/Resolving]
  - Weight fluctuation [Unknown]
  - Periarthritis [Not Recovered/Not Resolved]
  - Back disorder [Unknown]
  - Hunger [Unknown]
  - Weight increased [Unknown]
  - Taste disorder [Not Recovered/Not Resolved]
  - Euphoric mood [Unknown]
  - Pollakiuria [Not Recovered/Not Resolved]
  - Arthralgia [Not Recovered/Not Resolved]
  - Dehydration [Unknown]
  - Constipation [Not Recovered/Not Resolved]
  - Dry mouth [Not Recovered/Not Resolved]
  - Asthenia [Recovering/Resolving]
  - Feeling hot [Unknown]
  - Dizziness [Unknown]
  - Therapeutic product effect decreased [Unknown]
  - Product dose omission in error [Unknown]
  - Drug titration error [Unknown]

NARRATIVE: CASE EVENT DATE: 20200101
